FAERS Safety Report 4543963-6 (Version None)
Quarter: 2005Q1

REPORT INFORMATION
  Report Type: 
  Country: None (occurrence: None)
  Receive Date: 20050103
  Receipt Date: 20040325
  Transmission Date: 20050727
  Serious: Yes (Hospitalization)
  Sender: FDA-Public Use
  Company Number: GXKR2004DE00609

PATIENT
  Age: 80 Year
  Sex: Female

DRUGS (8)
  1. BISOPROLOL (NGX)(BISOPROLOL) TABLET [Suspect]
     Indication: ARRHYTHMIA
     Dosage: 5 MG, BID, ORAL
     Route: 048
     Dates: end: 20030612
  2. CONCOR (BISOPROLOL FUMARATE) TABLET [Suspect]
     Indication: MYOCARDIAL ISCHAEMIA
     Dosage: SEE IMAGE
     Route: 048
     Dates: start: 20030614
  3. DIGITOXIN TAB [Suspect]
     Indication: ARRHYTHMIA
     Dosage: 0.07 MG, ORAL
     Route: 048
  4. SOTALEX MITE (SOTALOL HYDROCHLORIDE) TABLET, 80MG [Suspect]
     Indication: ARRHYTHMIA
     Dosage: 40 MG, BID, ORAL
     Route: 048
     Dates: end: 20030612
  5. VALOCORDIN-DIAZEPAM (DIAZEPAM) SOLUTION [Suspect]
     Indication: EXTRASYSTOLES
     Dosage: 20 GTT BID, PRN, ORAL
     Route: 048
     Dates: end: 20030612
  6. ARLEVERT (CINNARIZINE, DIMEHYDRINATE) [Concomitant]
  7. THYREOCOMB N (LEVOTHYROXINE, POTASSIUM IODIDE) [Concomitant]
  8. BISOPROLOL RATIOPHARM (BISOPROLOL HEMIFUMARATE) [Concomitant]

REACTIONS (7)
  - BRADYCARDIA [None]
  - CIRCULATORY COLLAPSE [None]
  - DRUG INTERACTION [None]
  - FALL [None]
  - FEELING ABNORMAL [None]
  - LOSS OF CONSCIOUSNESS [None]
  - VERTIGO [None]
